FAERS Safety Report 9736684 (Version 2)
Quarter: 2013Q4

REPORT INFORMATION
  Report Type: Spontaneous
  Country: US (occurrence: US)
  Receive Date: 20131206
  Receipt Date: 20131206
  Transmission Date: 20140711
  Serious: No
  Sender: FDA-Public Use
  Company Number: US-GILEAD-2009-0023247

PATIENT
  Sex: Male
  Weight: 93.89 kg

DRUGS (13)
  1. LETAIRIS [Suspect]
     Indication: PULMONARY ARTERIAL HYPERTENSION
     Route: 048
     Dates: start: 20090531
  2. DILTIAZEM [Concomitant]
  3. METOPROLOL [Concomitant]
  4. COUMADIN [Concomitant]
  5. LYRICA [Concomitant]
  6. FORADIL AEROLIZER [Concomitant]
  7. QUINAPRIL [Concomitant]
  8. PULMICORT [Concomitant]
  9. SPIRIVA [Concomitant]
  10. ASPIRIN [Concomitant]
  11. RED YEAST RICE [Concomitant]
  12. MULTIVITAMIN [Concomitant]
  13. FISH OIL [Concomitant]

REACTIONS (5)
  - Depression [Recovered/Resolved]
  - Dizziness [Recovered/Resolved]
  - Tremor [Recovered/Resolved]
  - Eructation [Recovered/Resolved]
  - Dyspnoea [Recovering/Resolving]
